FAERS Safety Report 23290076 (Version 1)
Quarter: 2023Q4

REPORT INFORMATION
  Report Type: Spontaneous
  Country: US (occurrence: US)
  Receive Date: 20231212
  Receipt Date: 20231212
  Transmission Date: 20240110
  Serious: Yes (Hospitalization)
  Sender: FDA-Public Use
  Company Number: US-AMGEN-USASP2023220104

PATIENT
  Age: 71 Year
  Sex: Male

DRUGS (1)
  1. TAVNEOS [Suspect]
     Active Substance: AVACOPAN
     Indication: Granulomatosis with polyangiitis
     Dosage: 30 MILLIGRAM, BID (3 CAPSULES BY MOUTH TWO TIMES A DAY WITH FOOD)
     Route: 048
     Dates: start: 20221010

REACTIONS (1)
  - Abdominal pain [Unknown]
